FAERS Safety Report 20700999 (Version 1)
Quarter: 2022Q2

REPORT INFORMATION
  Report Type: Spontaneous
  Country: AU (occurrence: AU)
  Receive Date: 20220412
  Receipt Date: 20220412
  Transmission Date: 20220721
  Serious: Yes (Other)
  Sender: FDA-Public Use
  Company Number: AU-ELI_LILLY_AND_COMPANY-AU202203013908

PATIENT
  Age: 50 Year
  Sex: Female

DRUGS (2)
  1. CYMBALTA [Suspect]
     Active Substance: DULOXETINE HYDROCHLORIDE
     Indication: Post-traumatic stress disorder
     Dosage: 180 MG, UNKNOWN
     Route: 048
     Dates: start: 20200604, end: 20211013
  2. CYMBALTA [Suspect]
     Active Substance: DULOXETINE HYDROCHLORIDE
     Dosage: 60 MG, UNKNOWN
     Route: 048
     Dates: start: 20200604, end: 20211013

REACTIONS (9)
  - Migraine [Recovering/Resolving]
  - Muscle contractions involuntary [Recovering/Resolving]
  - Visual impairment [Recovered/Resolved]
  - Fatigue [Recovering/Resolving]
  - Serotonin syndrome [Recovering/Resolving]
  - Angioedema [Recovering/Resolving]
  - Insomnia [Recovering/Resolving]
  - Off label use [Unknown]
  - Overdose [Unknown]

NARRATIVE: CASE EVENT DATE: 20200604
